FAERS Safety Report 8409523 (Version 5)
Quarter: 2012Q4

REPORT INFORMATION
  Report Type: 
  Country: US (occurrence: US)
  Receive Date: 20120216
  Receipt Date: 20121105
  Transmission Date: 20130627
  Serious: Yes (Hospitalization)
  Sender: FDA-Public Use
  Company Number: US-ACTELION-A-US2012-61016

PATIENT
  Age: 47 Year
  Sex: Female

DRUGS (6)
  1. TRACLEER [Suspect]
     Indication: PULMONARY ARTERIAL HYPERTENSION
     Dosage: 125 mg, bid
     Route: 048
     Dates: start: 20111029
  2. TRACLEER [Suspect]
     Dosage: 62.5 mg, bid
     Route: 048
     Dates: start: 20110926, end: 20111028
  3. REVATIO [Concomitant]
  4. CALCIUM CHANNEL BLOCKERS [Concomitant]
  5. OXYGEN [Concomitant]
  6. ASA [Concomitant]

REACTIONS (17)
  - Pulmonary oedema [Unknown]
  - Pneumonia [Recovering/Resolving]
  - Pulmonary hypertension [Unknown]
  - Fatigue [Not Recovered/Not Resolved]
  - Depression [Unknown]
  - Balance disorder [Unknown]
  - Fall [Unknown]
  - Head injury [Unknown]
  - Contusion [Unknown]
  - Dyspepsia [Unknown]
  - Decreased appetite [Unknown]
  - Chest pain [Unknown]
  - Anaemia [Unknown]
  - Dyspnoea [Unknown]
  - Haemoptysis [Unknown]
  - Syncope [Unknown]
  - Dizziness [None]
